APPROVED DRUG PRODUCT: DICYCLOMINE HYDROCHLORIDE
Active Ingredient: DICYCLOMINE HYDROCHLORIDE
Strength: 10MG
Dosage Form/Route: CAPSULE;ORAL
Application: A085082 | Product #001 | TE Code: AB
Applicant: WATSON LABORATORIES INC
Approved: Jun 19, 1986 | RLD: No | RS: No | Type: RX